FAERS Safety Report 5700859-1 (Version None)
Quarter: 2008Q2

REPORT INFORMATION
  Report Type: 
  Country: None (occurrence: None)
  Receive Date: 20080407
  Receipt Date: 20080310
  Transmission Date: 20081010
  Serious: Yes (Hospitalization)
  Sender: FDA-Public Use
  Company Number: 2008AL001948

PATIENT
  Age: 72 Year
  Sex: Female

DRUGS (5)
  1. DIAZEPAM [Suspect]
     Indication: RELAXATION THERAPY
     Dosage: 2.5 MG; X1; IV
     Route: 042
     Dates: start: 20080215, end: 20080215
  2. KETORAX [Concomitant]
  3. CEFALOTIN [Concomitant]
  4. XYLOCAINE [Concomitant]
  5. STRYKER SPINEPLEX [Concomitant]

REACTIONS (4)
  - DYSPNOEA [None]
  - FLUSHING [None]
  - HYPOTENSION [None]
  - TACHYCARDIA [None]
